FAERS Safety Report 9851231 (Version 1)
Quarter: 2014Q1

REPORT INFORMATION
  Report Type: Report from Study
  Country: US (occurrence: US)
  Receive Date: 20140128
  Receipt Date: 20140128
  Transmission Date: 20141002
  Serious: Yes (Hospitalization)
  Sender: FDA-Public Use
  Company Number: US-EXELIXIS-XL18414003949

PATIENT
  Age: 51 Year
  Sex: Male
  Weight: 77.11 kg

DRUGS (25)
  1. XL184 [Suspect]
     Indication: PROSTATE CANCER
     Dosage: 60 MG, QD
     Route: 048
     Dates: start: 20130826, end: 2013
  2. XL184 [Suspect]
     Dosage: 40 MG, QD
     Route: 048
     Dates: start: 20131021
  3. PROVENTIL [Concomitant]
  4. EXCEDRIN EXTRA STRENGTH [Concomitant]
  5. DULCOLAX [Concomitant]
  6. SOMA [Concomitant]
  7. FLEXERIL [Concomitant]
  8. XGEVA [Concomitant]
  9. DOCUSATE [Concomitant]
  10. FENTANYL [Concomitant]
  11. DILAUDID [Concomitant]
  12. ATROVENT [Concomitant]
  13. CEPHULAC [Concomitant]
  14. LUPRON DEPOT [Concomitant]
  15. LIDODERM [Concomitant]
  16. ATIVAN [Concomitant]
  17. MEGACE [Concomitant]
  18. PATADAY [Concomitant]
  19. ZOFRAN [Concomitant]
  20. MIRALAX [Concomitant]
  21. COMPAZINE [Concomitant]
  22. ZANTAC [Concomitant]
  23. SENOKOT [Concomitant]
  24. ZOCOR [Concomitant]
  25. FLOMAX [Concomitant]

REACTIONS (7)
  - Chest pain [Unknown]
  - Anaemia [Unknown]
  - Hypokalaemia [Recovered/Resolved]
  - Hypocalcaemia [Recovered/Resolved]
  - Dehydration [Unknown]
  - Lethargy [Unknown]
  - Sinus tachycardia [Unknown]
